FAERS Safety Report 18333723 (Version 3)
Quarter: 2025Q3

REPORT INFORMATION
  Report Type: Report from Study
  Country: EU (occurrence: EU)
  Receive Date: 20201001
  Receipt Date: 20250706
  Transmission Date: 20251020
  Serious: Yes (Other)
  Sender: AUROBINDO
  Company Number: EU-GLAXOSMITHKLINE-PT2020GSK025689

PATIENT
  Age: 70 Year
  Sex: Male

DRUGS (4)
  1. AMOXICILLIN\CLAVULANIC ACID [Suspect]
     Active Substance: AMOXICILLIN\CLAVULANIC ACID
     Indication: Product used for unknown indication
     Route: 065
  2. CARBAMAZEPINE [Suspect]
     Active Substance: CARBAMAZEPINE
     Indication: Product used for unknown indication
     Route: 065
  3. CEFTRIAXONE [Suspect]
     Active Substance: CEFTRIAXONE
     Indication: Product used for unknown indication
     Route: 065
  4. AMPICILLIN [Concomitant]
     Active Substance: AMPICILLIN
     Indication: Product used for unknown indication

REACTIONS (7)
  - Renal function test abnormal [Recovered/Resolved]
  - Drug hypersensitivity [Unknown]
  - Drug reaction with eosinophilia and systemic symptoms [Recovered/Resolved]
  - Eosinophilia [Recovered/Resolved]
  - Condition aggravated [Recovered/Resolved]
  - Liver function test increased [Recovered/Resolved]
  - Dermatitis exfoliative generalised [Recovered/Resolved]

NARRATIVE: CASE EVENT DATE: 20100101
